FAERS Safety Report 24748030 (Version 1)
Quarter: 2024Q4

REPORT INFORMATION
  Report Type: Spontaneous
  Country: IN (occurrence: IN)
  Receive Date: 20241218
  Receipt Date: 20241218
  Transmission Date: 20250115
  Serious: Yes (Other)
  Sender: GLAND PHARMA LTD
  Company Number: IN-GLANDPHARMA-IN-2024GLNLIT01256

PATIENT
  Age: 45 Year
  Sex: Female

DRUGS (2)
  1. CISPLATIN [Suspect]
     Active Substance: CISPLATIN
     Indication: Sebaceous carcinoma
     Dosage: DAY 1,
     Route: 042
  2. FLUOROURACIL [Suspect]
     Active Substance: FLUOROURACIL
     Indication: Sebaceous carcinoma
     Dosage: OVER 6 H ON DAYS 1-4
     Route: 065

REACTIONS (2)
  - Ulcerative keratitis [Unknown]
  - Product use in unapproved indication [Unknown]
